FAERS Safety Report 21258857 (Version 1)
Quarter: 2022Q3

REPORT INFORMATION
  Report Type: Spontaneous
  Country: IN (occurrence: IN)
  Receive Date: 20220826
  Receipt Date: 20220826
  Transmission Date: 20221027
  Serious: Yes (Hospitalization, Other)
  Sender: FDA-Public Use
  Company Number: IN-PRAXGEN-2022PPLIT00014

PATIENT
  Age: 55 Year
  Sex: Female

DRUGS (4)
  1. METHYLPREDNISOLONE [Suspect]
     Active Substance: METHYLPREDNISOLONE
     Indication: COVID-19
     Dosage: FOR 15 DAYS
     Route: 065
  2. METHYLPREDNISOLONE [Suspect]
     Active Substance: METHYLPREDNISOLONE
     Indication: Off label use
     Dosage: FOR THE NEXT 15 DAYS
     Route: 065
  3. REMDESIVIR [Concomitant]
     Active Substance: REMDESIVIR
     Indication: COVID-19
     Dosage: ON FIRST DAY
     Route: 042
  4. REMDESIVIR [Concomitant]
     Active Substance: REMDESIVIR
     Dosage: ONCE DAILY FOR NEXT FOUR DAYS
     Route: 042

REACTIONS (2)
  - Jejunal perforation [Recovered/Resolved]
  - Off label use [Unknown]
